FAERS Safety Report 24333344 (Version 1)
Quarter: 2024Q3

REPORT INFORMATION
  Report Type: Spontaneous
  Country: US (occurrence: US)
  Receive Date: 20240918
  Receipt Date: 20240918
  Transmission Date: 20241016
  Serious: Yes (Life-Threatening, Other)
  Sender: HIKMA
  Company Number: US-HIKMA PHARMACEUTICALS USA INC.-US-H14001-24-08424

PATIENT
  Age: 76 Year
  Sex: Female
  Weight: 92.2 kg

DRUGS (13)
  1. CYCLOPHOSPHAMIDE [Suspect]
     Active Substance: CYCLOPHOSPHAMIDE
     Indication: Product used for unknown indication
     Dosage: 150 MILLIGRAM/SQ. METER, CYCLE 1, 3 SCHEDULE EVERY 12 HRS X 6 DOSES, DAYS 1-3,
     Route: 042
     Dates: start: 20230612, end: 20230615
  2. CYTARABINE [Suspect]
     Active Substance: CYTARABINE
     Indication: Product used for unknown indication
     Dosage: CYCLE 1-2, SCHEDULE DAY 2, DAY 8
     Route: 037
     Dates: start: 20230613
  3. CYTARABINE [Suspect]
     Active Substance: CYTARABINE
     Dosage: CYCLE 2, 4. DOSE 0.5 G/M2/DOSE. SCHEDULE EVERY 12 HRS X 4 DOSES, DAYS 2, 3
     Route: 042
     Dates: end: 20230620
  4. DEXAMETHASONE [Suspect]
     Active Substance: DEXAMETHASONE
     Indication: Product used for unknown indication
     Dosage: 20 MG, CYCLE 1, 3, SCHEDULE DAYS 1-4, DAYS 11-14
     Route: 048
     Dates: start: 20230612
  5. DEXAMETHASONE [Suspect]
     Active Substance: DEXAMETHASONE
     Indication: Product used for unknown indication
     Dosage: 20 MILLIGRAM, CYCLE 1, 3, SCHEDULE DAYS 1-4, DAYS 11-14
     Route: 042
     Dates: start: 20230612
  6. INOTUZUMAB OZOGAMICIN [Suspect]
     Active Substance: INOTUZUMAB OZOGAMICIN
     Indication: Product used for unknown indication
     Dosage: CYCLE 1: 0.6MG/M2 D2, 0.3MG/M2 D8. CYCLES 2-4: 0.3 MG/M2 D2, 0.3 MG/M2 D8
     Route: 042
     Dates: start: 20230613, end: 20230619
  7. MESNA [Suspect]
     Active Substance: MESNA
     Indication: Product used for unknown indication
     Dosage: 300 MILLIGRAM/SQ. METER, CYCLE 1, 3, SCHEDULE DAYS 1-3
     Route: 065
     Dates: start: 20230612
  8. METHOTREXATE [Suspect]
     Active Substance: METHOTREXATE
     Indication: Product used for unknown indication
     Dosage: 12 MILLIGRAM, CYCLE 1-2, SCHEDULE DAY 2, DAY 8
     Route: 037
     Dates: start: 20230613
  9. METHOTREXATE [Suspect]
     Active Substance: METHOTREXATE
     Dosage: 250 MILLIGRAM/SQ. METER, CYCLE 2, 4, SCHEDULE DAY 1
     Route: 042
     Dates: end: 20230627
  10. METHYLPREDNISOLONE [Suspect]
     Active Substance: METHYLPREDNISOLONE
     Indication: Product used for unknown indication
     Dosage: 50 MILLIGRAM, CYCLE 2, 4, SCHEDULE EVERY 12 HRS X 6 DOSES, DAYS 1-3
     Route: 042
  11. RITUXIMAB [Suspect]
     Active Substance: RITUXIMAB
     Indication: Product used for unknown indication
     Dosage: 375 MILLIGRAM/SQ. METER, CYCLE 1-4, SCHEDULE DAY 2, DAY 8
     Route: 042
     Dates: start: 20230613
  12. VINCRISTINE SULFATE [Suspect]
     Active Substance: VINCRISTINE SULFATE
     Dosage: 2 MILLIGRAM
     Route: 042
     Dates: start: 20230619
  13. VINCRISTINE SULFATE [Suspect]
     Active Substance: VINCRISTINE SULFATE
     Indication: Product used for unknown indication
     Dosage: CYCLE 1, 3, SCHEDULE DAY 1, DAY 8
     Route: 042
     Dates: start: 20230612

REACTIONS (1)
  - Neutrophil count decreased [Recovered/Resolved]

NARRATIVE: CASE EVENT DATE: 20230710
